FAERS Safety Report 14554479 (Version 1)
Quarter: 2018Q1

REPORT INFORMATION
  Report Type: Spontaneous
  Country: US (occurrence: US)
  Receive Date: 20180218
  Receipt Date: 20180218
  Transmission Date: 20180509
  Serious: Yes (Disabling)
  Sender: FDA-Public Use
  Company Number: None

PATIENT
  Age: 57 Year
  Sex: Female
  Weight: 63 kg

DRUGS (11)
  1. MELATONIN [Concomitant]
     Active Substance: MELATONIN
  2. VITAMIN C [Concomitant]
     Active Substance: ASCORBIC ACID
  3. MULTIVITAMIN [Concomitant]
     Active Substance: VITAMINS
  4. EXCEDRIN MIGRAINE [Concomitant]
     Active Substance: ACETAMINOPHEN\ASPIRIN\CAFFEINE
  5. ESTRADIOL. [Concomitant]
     Active Substance: ESTRADIOL
  6. NASOCORT [Concomitant]
     Active Substance: BUDESONIDE
  7. VITAMIN E [Concomitant]
     Active Substance: .ALPHA.-TOCOPHEROL
  8. ACETAMINOPHEN. [Concomitant]
     Active Substance: ACETAMINOPHEN
  9. PROPRANOLOL [Suspect]
     Active Substance: PROPRANOLOL HYDROCHLORIDE
     Indication: MIGRAINE PROPHYLAXIS
     Dosage: ?          OTHER FREQUENCY:SEE NOTE, VARIED;?
     Route: 048
     Dates: start: 20170421, end: 20180218
  10. PROPRANOLOL [Suspect]
     Active Substance: PROPRANOLOL HYDROCHLORIDE
     Indication: BLOOD PRESSURE MEASUREMENT
     Dosage: ?          OTHER FREQUENCY:SEE NOTE, VARIED;?
     Route: 048
     Dates: start: 20170421, end: 20180218
  11. ALLEGRA [Concomitant]
     Active Substance: FEXOFENADINE HYDROCHLORIDE

REACTIONS (10)
  - Alopecia [None]
  - Fatigue [None]
  - Sleep disorder [None]
  - Duodenitis [None]
  - Weight increased [None]
  - Abdominal distension [None]
  - Oesophagitis [None]
  - Diarrhoea [None]
  - Gastrooesophageal reflux disease [None]
  - Dyspepsia [None]
